FAERS Safety Report 14516041 (Version 1)
Quarter: 2018Q1

REPORT INFORMATION
  Report Type: Report from Study
  Country: US (occurrence: US)
  Receive Date: 20180211
  Receipt Date: 20180211
  Transmission Date: 20180509
  Serious: No
  Sender: FDA-Public Use
  Company Number: US-PUMA BIOTECHNOLOGY, LTD.-2017US017062

PATIENT

DRUGS (1)
  1. NERLYNX [Suspect]
     Active Substance: NERATINIB
     Indication: BURKITT^S LYMPHOMA STAGE II
     Dosage: 240 MG, DAILY
     Dates: start: 20171204, end: 20171211

REACTIONS (6)
  - Diarrhoea [Unknown]
  - Vomiting [Unknown]
  - Nausea [Unknown]
  - Blood creatinine increased [Unknown]
  - Adverse drug reaction [Unknown]
  - Off label use [None]
